FAERS Safety Report 17215528 (Version 1)
Quarter: 2019Q4

REPORT INFORMATION
  Report Type: Spontaneous
  Country: DE (occurrence: DE)
  Receive Date: 20191230
  Receipt Date: 20191230
  Transmission Date: 20200122
  Serious: Yes (Other)
  Sender: FDA-Public Use
  Company Number: DE-MYLANLABS-2019M1128708

PATIENT
  Age: 36 Year
  Sex: Male

DRUGS (4)
  1. ALCOHOL. [Suspect]
     Active Substance: ALCOHOL
     Indication: PRODUCT USED FOR UNKNOWN INDICATION
     Dosage: UNK
     Route: 048
  2. PREGABALIN. [Suspect]
     Active Substance: PREGABALIN
     Indication: PRODUCT USED FOR UNKNOWN INDICATION
     Dosage: UNK
     Route: 048
  3. PREGABALIN BETA [Suspect]
     Active Substance: PREGABALIN
     Indication: PRODUCT USED FOR UNKNOWN INDICATION
     Dosage: UNKNOWN QUANTITY (OVER 1 HOUR)
     Route: 048
     Dates: start: 20190909, end: 20190909
  4. ALCOHOL. [Suspect]
     Active Substance: ALCOHOL
     Dosage: UNKNOWN QUANTITY
     Route: 048
     Dates: start: 20190909, end: 20190909

REACTIONS (5)
  - Hypertension [Unknown]
  - Intentional overdose [Unknown]
  - Tachycardia [Unknown]
  - Suicide attempt [Unknown]
  - Tremor [Unknown]

NARRATIVE: CASE EVENT DATE: 20190909
